FAERS Safety Report 8532343-4 (Version None)
Quarter: 2012Q3

REPORT INFORMATION
  Report Type: 
  Country: None (occurrence: None)
  Receive Date: 20120724
  Receipt Date: 20120716
  Transmission Date: 20120928
  Serious: No
  Sender: FDA-Public Use
  Company Number: US-BIOGENIDEC-2012BI021251

PATIENT
  Sex: Female

DRUGS (10)
  1. STEROIDS [Concomitant]
     Indication: PRODUCT USED FOR UNKNOWN INDICATION
  2. AVONEX [Concomitant]
     Indication: MULTIPLE SCLEROSIS
     Route: 030
     Dates: start: 20010713
  3. DETROL [Concomitant]
     Indication: MICTURITION URGENCY
  4. THYROID MEDICATION [Concomitant]
     Indication: HYPOTHYROIDISM
  5. METFORMIN HYDROCHLORIDE [Concomitant]
     Indication: TYPE 2 DIABETES MELLITUS
  6. TYSABRI [Suspect]
     Indication: MULTIPLE SCLEROSIS
     Route: 042
     Dates: start: 20061116, end: 20120117
  7. TYSABRI [Suspect]
     Route: 042
     Dates: start: 20120507
  8. RESTORIL [Concomitant]
     Indication: INSOMNIA
  9. DETROL [Concomitant]
     Indication: POLLAKIURIA
  10. EFFEXOR [Concomitant]
     Indication: DEPRESSION

REACTIONS (3)
  - HEPATIC STEATOSIS [None]
  - BLOOD PRESSURE ABNORMAL [None]
  - CHOLECYSTECTOMY [None]
